FAERS Safety Report 10195558 (Version 2)
Quarter: 2014Q2

REPORT INFORMATION
  Report Type: Report from Study
  Country: CA (occurrence: CA)
  Receive Date: 20140527
  Receipt Date: 20140529
  Transmission Date: 20141212
  Serious: Yes (Hospitalization, Other)
  Sender: FDA-Public Use
  Company Number: CA-ROCHE-1403280

PATIENT
  Age: 66 Year
  Sex: Female

DRUGS (13)
  1. ACTEMRA [Suspect]
     Indication: RHEUMATOID ARTHRITIS
     Route: 042
     Dates: start: 20120822
  2. ACTEMRA [Suspect]
     Route: 042
     Dates: start: 20130220
  3. CITALOPRAM [Concomitant]
  4. TEMAZEPAM [Concomitant]
  5. DETROL [Concomitant]
  6. SOFLAX (CANADA) [Concomitant]
  7. OXYNEO [Concomitant]
  8. CARBAMAZEPINE [Concomitant]
  9. DILANTIN [Concomitant]
  10. WARFARIN [Concomitant]
  11. TECTA [Concomitant]
  12. PREDNISONE [Concomitant]
  13. IRBESARTAN [Concomitant]

REACTIONS (7)
  - Fall [Recovered/Resolved]
  - Oxygen saturation decreased [Recovered/Resolved]
  - Lethargy [Recovered/Resolved]
  - White blood cell count decreased [Recovered/Resolved]
  - Pneumonia [Unknown]
  - Rheumatoid arthritis [Not Recovered/Not Resolved]
  - Balance disorder [Unknown]
